FAERS Safety Report 21238309 (Version 1)
Quarter: 2022Q3

REPORT INFORMATION
  Report Type: Spontaneous
  Country: US (occurrence: US)
  Receive Date: 20220822
  Receipt Date: 20220822
  Transmission Date: 20221026
  Serious: No
  Sender: FDA-Public Use
  Company Number: US-BAYER-2022A111004

PATIENT
  Age: 62 Year

DRUGS (7)
  1. ALEVE [Suspect]
     Active Substance: NAPROXEN SODIUM
     Indication: Pain
     Dosage: UNK UNK, QD
     Route: 048
     Dates: start: 202207
  2. ALEVE [Suspect]
     Active Substance: NAPROXEN SODIUM
     Indication: Migraine
     Dosage: UNK UNK, BID
     Route: 048
     Dates: start: 202207
  3. ALEVE [Suspect]
     Active Substance: NAPROXEN SODIUM
     Indication: Fibromyalgia
  4. ALEVE [Suspect]
     Active Substance: NAPROXEN SODIUM
     Indication: Systemic lupus erythematosus
  5. CLARITIN [Concomitant]
     Active Substance: LORATADINE
     Dosage: UNK
  6. BIOTIN [Concomitant]
     Active Substance: BIOTIN
  7. VITAMINS NOS [Concomitant]
     Active Substance: VITAMINS

REACTIONS (2)
  - Drug effective for unapproved indication [Unknown]
  - Incorrect product administration duration [Not Recovered/Not Resolved]
